FAERS Safety Report 5785910-5 (Version None)
Quarter: 2008Q2

REPORT INFORMATION
  Report Type: 
  Country: None (occurrence: None)
  Receive Date: 20080624
  Receipt Date: 20070524
  Transmission Date: 20081010
  Serious: No
  Sender: FDA-Public Use
  Company Number: US-ASTRAZENECA-2007UW12871

PATIENT
  Age: 82 Year
  Sex: Male
  Weight: 98 kg

DRUGS (9)
  1. PULMICORT FLEXHALER [Suspect]
     Indication: COUGH
     Dosage: 1 PUFF DAILY
     Route: 055
     Dates: start: 20070521
  2. PULMICORT FLEXHALER [Suspect]
     Indication: GASTROOESOPHAGEAL REFLUX DISEASE
     Dosage: 1 PUFF DAILY
     Route: 055
     Dates: start: 20070521
  3. BICALUTAMIDE [Concomitant]
  4. DIGOXIN [Concomitant]
  5. SIMVASTATIN [Concomitant]
  6. QUINAPRIL [Concomitant]
  7. NEXIUM [Concomitant]
     Route: 048
  8. ZEGERID [Concomitant]
  9. VIADUR [Concomitant]

REACTIONS (3)
  - COUGH [None]
  - LUNG DISORDER [None]
  - VIRAL UPPER RESPIRATORY TRACT INFECTION [None]
